FAERS Safety Report 9972085 (Version 1)
Quarter: 2014Q1

REPORT INFORMATION
  Report Type: Report from Study
  Country: US (occurrence: US)
  Receive Date: 20140306
  Receipt Date: 20140306
  Transmission Date: 20141002
  Serious: No
  Sender: FDA-Public Use
  Company Number: US-ABBVIE-13P-163-1148488-00

PATIENT
  Age: 68 Year
  Sex: Female
  Weight: 90.8 kg

DRUGS (15)
  1. HUMIRA [Suspect]
     Indication: RHEUMATOID ARTHRITIS
     Route: 058
     Dates: start: 201306, end: 20130905
  2. LYRICA [Concomitant]
     Indication: PAIN
  3. CELEBREX [Concomitant]
     Indication: PAIN
  4. HYDROCODONE [Concomitant]
     Indication: PAIN
  5. ESTRADIOL [Concomitant]
     Indication: GASTROOESOPHAGEAL REFLUX DISEASE
  6. NEXIUM [Concomitant]
     Indication: GASTROOESOPHAGEAL REFLUX DISEASE
  7. FOLIC ACID [Concomitant]
     Indication: VITAMIN SUPPLEMENTATION
  8. TRILIPIX [Concomitant]
     Indication: BLOOD CHOLESTEROL INCREASED
  9. LEVOTHYROXINE [Concomitant]
     Indication: HYPOTHYROIDISM
  10. CRESTOR [Concomitant]
     Indication: BLOOD CHOLESTEROL INCREASED
  11. CYMBALTA [Concomitant]
     Indication: PAIN
  12. CEPHALEXIN [Concomitant]
     Indication: INFECTION PROPHYLAXIS
     Route: 048
     Dates: start: 20130913
  13. LASIX [Concomitant]
     Indication: FLUID RETENTION
  14. CARDIZEM LA [Concomitant]
     Indication: HYPERTENSION
  15. METFORMIN [Concomitant]
     Indication: DIABETES MELLITUS

REACTIONS (2)
  - Ingrowing nail [Recovered/Resolved]
  - Influenza [Recovered/Resolved]
